FAERS Safety Report 9967159 (Version 1)
Quarter: 2014Q1

REPORT INFORMATION
  Report Type: Report from Study
  Country: US (occurrence: US)
  Receive Date: 20140305
  Receipt Date: 20140305
  Transmission Date: 20141002
  Serious: No
  Sender: FDA-Public Use
  Company Number: US-ABBVIE-13P-163-1139733-00

PATIENT
  Sex: Male

DRUGS (2)
  1. HUMIRA [Suspect]
     Indication: PSORIASIS
     Dosage: 80 MG, 40 MG DAY 1, 8, 22 AND EVERY OTHER WEEK
     Route: 058
  2. HUMIRA [Suspect]
     Dosage: 80 MG, 40 MG DAY 1, 8, 22 AND EVERY OTHER WEEK
     Route: 058

REACTIONS (2)
  - Skin fissures [Unknown]
  - Psoriasis [Unknown]
